FAERS Safety Report 15671676 (Version 1)
Quarter: 2018Q4

REPORT INFORMATION
  Report Type: Report from Study
  Country: US (occurrence: US)
  Receive Date: 20181129
  Receipt Date: 20181129
  Transmission Date: 20190205
  Serious: Yes (Other)
  Sender: FDA-Public Use
  Company Number: US-TEVA-2018-US-980410

PATIENT
  Age: 77 Year
  Sex: Female

DRUGS (3)
  1. TREPROSTINIL SODIUM [Suspect]
     Active Substance: TREPROSTINIL SODIUM
     Dosage: INJECTION: 10.0 MG/ML
     Route: 041
     Dates: start: 20170203
  2. TREPROSTINIL SODIUM [Suspect]
     Active Substance: TREPROSTINIL SODIUM
     Indication: PULMONARY ARTERIAL HYPERTENSION
     Dosage: INJECTION: 10.0 MG/ML
     Route: 041
     Dates: start: 20161122
  3. SULFAMETHOXAZOLE W/TRIMETHOPRIM [Suspect]
     Active Substance: SULFAMETHOXAZOLE\TRIMETHOPRIM
     Indication: CYSTITIS
     Route: 065
     Dates: start: 201810

REACTIONS (2)
  - Drug hypersensitivity [Unknown]
  - Cystitis [Unknown]

NARRATIVE: CASE EVENT DATE: 201810
